FAERS Safety Report 24396929 (Version 1)
Quarter: 2024Q4

REPORT INFORMATION
  Report Type: Spontaneous
  Country: US (occurrence: None)
  Receive Date: 20241004
  Receipt Date: 20241004
  Transmission Date: 20250115
  Serious: Yes (Hospitalization)
  Sender: Public
  Company Number: None

PATIENT
  Age: 56 Year
  Sex: Male

DRUGS (2)
  1. MEKINIST [Suspect]
     Active Substance: TRAMETINIB DIMETHYL SULFOXIDE
     Indication: Pleural mesothelioma malignant
     Dosage: FREQUENCY : DAILY;?
  2. TAFINLAR [Concomitant]

REACTIONS (2)
  - Urinary tract infection [None]
  - Therapy interrupted [None]
